FAERS Safety Report 4431874-6 (Version None)
Quarter: 2004Q3

REPORT INFORMATION
  Report Type: 
  Country: None (occurrence: None)
  Receive Date: 20040819
  Receipt Date: 20040805
  Transmission Date: 20050211
  Serious: Yes (Hospitalization)
  Sender: FDA-Public Use
  Company Number: A02200402409

PATIENT
  Age: 70 Year
  Sex: Female

DRUGS (8)
  1. STILNOX - (ZOLPIDEM) - TABLET - 10MG [Suspect]
     Dosage: 4 MG OD
     Route: 048
     Dates: end: 20040125
  2. AMAREL - (GLIMEPIRIDE) - TABLET - 4 MG [Suspect]
     Dosage: 4 MG OD
     Route: 048
  3. KARDEGIC - (ACETYLSALICYLIC LYSINE) - POWDER - 75 MG [Suspect]
     Route: 048
     Dates: end: 20040125
  4. VASTAREL ^BIOPHARMA^ - (TRIMETAZIDINE HYDROCHLORIDE) - TABLET [Suspect]
     Route: 048
     Dates: end: 20040125
  5. DEROXAT - (PAROXETINE HYDROCHLORIDE) - TABLET - 20 MG [Suspect]
     Route: 048
     Dates: end: 20040125
  6. GUTRON - (MIDODRINE HYDROCHLORIDE) - TABLET - 2.5 MG [Suspect]
     Dosage: 2.5 MG OD
     Route: 048
     Dates: end: 20040125
  7. GLUCOPHAGE [Concomitant]
  8. MEDIATOR (BENFLUOREX HYDROCHLORIDE) [Concomitant]

REACTIONS (4)
  - ANAEMIA [None]
  - GASTRIC ULCER [None]
  - HAEMATEMESIS [None]
  - HELICOBACTER INFECTION [None]
